FAERS Safety Report 20496592 (Version 1)
Quarter: 2022Q1

REPORT INFORMATION
  Report Type: Spontaneous
  Country: US (occurrence: US)
  Receive Date: 20220221
  Receipt Date: 20220221
  Transmission Date: 20220423
  Serious: No
  Sender: FDA-Public Use
  Company Number: US-DSJP-DSU-2022-106216AA

PATIENT

DRUGS (1)
  1. ENHERTU [Suspect]
     Active Substance: FAM-TRASTUZUMAB DERUXTECAN-NXKI
     Indication: Colorectal cancer
     Dosage: UNK, ONCE EVERY 3 WK
     Route: 042

REACTIONS (2)
  - Haemoptysis [Unknown]
  - Off label use [Unknown]
